FAERS Safety Report 5213318-X (Version None)
Quarter: 2007Q1

REPORT INFORMATION
  Report Type: 
  Country: None (occurrence: None)
  Receive Date: 20070119
  Receipt Date: 20060301
  Transmission Date: 20070707
  Serious: Yes (Hospitalization, Disabling, Other)
  Sender: FDA-Public Use
  Company Number: A01200601138

PATIENT
  Age: 57 Year
  Sex: Male

DRUGS (1)
  1. ARIXTRA [Suspect]
     Dosage: 2.5MG UNKNOWN
     Route: 042
     Dates: start: 20060106, end: 20060109

REACTIONS (3)
  - POST PROCEDURAL INFECTION [None]
  - SOFT TISSUE HAEMORRHAGE [None]
  - SWELLING [None]
